FAERS Safety Report 9457254 (Version 1)
Quarter: 2013Q3

REPORT INFORMATION
  Report Type: Spontaneous
  Country: BR (occurrence: BR)
  Receive Date: 20130814
  Receipt Date: 20130814
  Transmission Date: 20140515
  Serious: Yes (Hospitalization, Other)
  Sender: FDA-Public Use
  Company Number: PHHY2013BR085274

PATIENT
  Age: 30 Year
  Sex: Male

DRUGS (10)
  1. CLOZAPINE [Suspect]
     Indication: SCHIZOPHRENIA
  2. CLOZAPINE [Suspect]
     Dosage: 500 MG, QD
  3. CLOZAPINE [Suspect]
     Dosage: 500 MG, QD
  4. OLANZAPINE [Concomitant]
     Indication: SCHIZOPHRENIA
  5. QUETIAPINE [Concomitant]
     Indication: SCHIZOPHRENIA
  6. CITALOPRAM [Concomitant]
     Indication: SCHIZOPHRENIA
     Dosage: 20 MG, QD
  7. ARIPIPRAZOLE [Concomitant]
     Dosage: 15 MG, PER DAY
  8. ARIPIPRAZOLE [Concomitant]
     Dosage: 30 MG, UNK
  9. LORAZEPAM [Concomitant]
     Dosage: 2 MG, TID
  10. ZIPRASIDONE [Concomitant]
     Dosage: UNK UKN, UNK

REACTIONS (15)
  - Dengue fever [Unknown]
  - Headache [Unknown]
  - Bone pain [Unknown]
  - Pyrexia [Unknown]
  - Rash [Unknown]
  - Nausea [Unknown]
  - Vomiting [Unknown]
  - Rash maculo-papular [Unknown]
  - White blood cell count decreased [Recovered/Resolved]
  - Neutropenia [Recovered/Resolved]
  - Platelet count decreased [Recovered/Resolved]
  - Schizophrenia [Recovering/Resolving]
  - Catatonia [Unknown]
  - Tremor [Unknown]
  - Syncope [Unknown]
